FAERS Safety Report 8028824-2 (Version None)
Quarter: 2012Q1

REPORT INFORMATION
  Report Type: 
  Country: None (occurrence: None)
  Receive Date: 20120106
  Receipt Date: 20111222
  Transmission Date: 20120608
  Serious: Yes (Death)
  Sender: FDA-Public Use
  Company Number: IT-CELGENEUS-083-21880-11113536

PATIENT
  Age: 60 Year
  Sex: Female

DRUGS (2)
  1. REVLIMID [Suspect]
     Route: 048
     Dates: start: 20100118
  2. REVLIMID [Suspect]
     Indication: LYMPHOMA
     Route: 048
     Dates: start: 20091207, end: 20091220

REACTIONS (1)
  - LYMPHOMA [None]
